FAERS Safety Report 10987148 (Version 1)
Quarter: 2015Q1

REPORT INFORMATION
  Report Type: Spontaneous
  Country: US (occurrence: None)
  Receive Date: 20150324
  Receipt Date: 20150324
  Transmission Date: 20150721
  Serious: Yes (Other)
  Sender: FDA-Public Use
  Company Number: 1000070579

PATIENT
  Age: 37 Year
  Sex: Male

DRUGS (12)
  1. COENZYME Q10 (UBIDECARENONE) (UBIDECARENONE) [Concomitant]
  2. CAYENNE PEPPER (CAYENNE PEPPER) (CAYENNE PEPPER) [Concomitant]
  3. VIIBRYD [Suspect]
     Active Substance: VILAZODONE HYDROCHLORIDE
     Indication: ANXIETY
     Dosage: 20 MG (20 MG, 1 IN 1 D), ORAL
     Route: 048
     Dates: start: 2013, end: 201409
  4. FISH OIL (FISH OIL) (FISH OIL) [Concomitant]
  5. VIIBRYD [Suspect]
     Active Substance: VILAZODONE HYDROCHLORIDE
     Indication: ANXIETY
     Dosage: 10 MG (10 MG, 1 IN 1 D), ORAL
     Route: 048
     Dates: start: 201409, end: 201409
  6. MVI (VITAMINS NOS) (VITAMINS NOS) [Concomitant]
  7. VIT C (ASCORBIC ACID) (ASCORBIC ACID) [Concomitant]
  8. FLAXSEED OIL (LINUM USITATISSIMUM SEED OIL) (LINUMUSITATISSIMUM SEED OIL) [Concomitant]
  9. VIIBRYD [Suspect]
     Active Substance: VILAZODONE HYDROCHLORIDE
     Indication: ANXIETY
     Dosage: 10 MG (10 MG, 1 IN 1 D), ORAL
     Route: 048
     Dates: start: 2013, end: 2013
  10. VIIBRYD [Suspect]
     Active Substance: VILAZODONE HYDROCHLORIDE
     Indication: AGGRESSION
     Dosage: 10 MG (10 MG, 1 IN 1 D), ORAL
     Route: 048
     Dates: start: 2013, end: 2013
  11. VIIBRYD [Suspect]
     Active Substance: VILAZODONE HYDROCHLORIDE
     Indication: AGGRESSION
     Dosage: 20 MG (20 MG, 1 IN 1 D), ORAL
     Route: 048
     Dates: start: 2013, end: 201409
  12. VIIBRYD [Suspect]
     Active Substance: VILAZODONE HYDROCHLORIDE
     Indication: AGGRESSION
     Dosage: 10 MG (10 MG, 1 IN 1 D), ORAL
     Route: 048
     Dates: start: 201409, end: 201409

REACTIONS (9)
  - Suicidal ideation [None]
  - Off label use [None]
  - Dizziness [None]
  - Arthralgia [None]
  - Myalgia [None]
  - Influenza like illness [None]
  - Memory impairment [None]
  - Paraesthesia [None]
  - Depression [None]

NARRATIVE: CASE EVENT DATE: 2013
